FAERS Safety Report 8014886-5 (Version None)
Quarter: 2011Q4

REPORT INFORMATION
  Report Type: 
  Country: None (occurrence: None)
  Receive Date: 20111229
  Receipt Date: 20111227
  Transmission Date: 20120403
  Serious: Yes (Other)
  Sender: FDA-Public Use
  Company Number: US-PFIZER INC-2011314621

PATIENT
  Sex: Male

DRUGS (1)
  1. CHANTIX [Suspect]
     Dosage: UNK, 2X/DAY

REACTIONS (4)
  - SUICIDAL IDEATION [None]
  - CRYING [None]
  - EMOTIONAL DISORDER [None]
  - MOOD SWINGS [None]
